FAERS Safety Report 23349506 (Version 1)
Quarter: 2023Q4

REPORT INFORMATION
  Report Type: Spontaneous
  Country: IT (occurrence: IT)
  Receive Date: 20231229
  Receipt Date: 20231229
  Transmission Date: 20240109
  Serious: Yes (Other)
  Sender: FDA-Public Use
  Company Number: IT-Indicus Pharma-000990

PATIENT
  Age: 39 Week
  Sex: Male
  Weight: 2.56 kg

DRUGS (1)
  1. ACETAZOLAMIDE [Suspect]
     Active Substance: ACETAZOLAMIDE
     Indication: Product used for unknown indication
     Route: 064

REACTIONS (2)
  - Metabolic acidosis [Unknown]
  - Foetal exposure during pregnancy [Unknown]
